FAERS Safety Report 26044954 (Version 3)
Quarter: 2025Q4

REPORT INFORMATION
  Report Type: Spontaneous
  Country: EU (occurrence: EU)
  Receive Date: 20251114
  Receipt Date: 20251222
  Transmission Date: 20260117
  Serious: Yes (Other)
  Sender: AMICUS THERAPEUTICS
  Company Number: EU-AMICUS THERAPEUTICS, INC.-AMI_4501

PATIENT
  Age: 44 Year
  Sex: Male
  Weight: 92 kg

DRUGS (4)
  1. POMBILITI [Suspect]
     Active Substance: CIPAGLUCOSIDASE ALFA-ATGA
     Indication: Glycogen storage disease type II
     Dosage: 1890 MILLIGRAM, Q2WK (HOME THERAPY)
     Route: 042
     Dates: start: 20240113, end: 20251107
  2. POMBILITI [Suspect]
     Active Substance: CIPAGLUCOSIDASE ALFA-ATGA
     Dosage: 1890 MILLIGRAM, Q2WK (HOME THERAPY)
     Route: 042
     Dates: start: 20251124
  3. OPFOLDA [Suspect]
     Active Substance: MIGLUSTAT
     Indication: Glycogen storage disease type II
     Dosage: 260 MILLIGRAM, Q2WK (HOME THERAPY)
     Route: 048
     Dates: start: 20240113, end: 20251107
  4. OPFOLDA [Suspect]
     Active Substance: MIGLUSTAT
     Dosage: 260 MILLIGRAM, Q2WK (HOME THERAPY)
     Route: 048
     Dates: start: 20251124

REACTIONS (1)
  - Pneumonia [Recovered/Resolved]

NARRATIVE: CASE EVENT DATE: 20251103
